FAERS Safety Report 7493534-7 (Version None)
Quarter: 2011Q2

REPORT INFORMATION
  Report Type: 
  Country: None (occurrence: None)
  Receive Date: 20110520
  Receipt Date: 20110513
  Transmission Date: 20111010
  Serious: Yes (Other)
  Sender: FDA-Public Use
  Company Number: FR-PFIZER INC-2011103157

PATIENT
  Age: 29 Year
  Sex: Female

DRUGS (1)
  1. ZYVOX [Suspect]
     Indication: SEPTIC SHOCK
     Dosage: UNK
     Dates: end: 20090101

REACTIONS (1)
  - DEAFNESS BILATERAL [None]
